FAERS Safety Report 21443331 (Version 1)
Quarter: 2022Q4

REPORT INFORMATION
  Report Type: Report from Study
  Country: US (occurrence: US)
  Receive Date: 20221012
  Receipt Date: 20221012
  Transmission Date: 20230113
  Serious: No
  Sender: FDA-Public Use
  Company Number: US-ABBVIE-4139021

PATIENT
  Sex: Female

DRUGS (1)
  1. VENCLEXTA [Suspect]
     Active Substance: VENETOCLAX
     Indication: Plasma cell myeloma
     Dosage: DOSE: 400 MG TAKE 4 TABLET(S) BY MOUTH (400MG) WITH FOOD?FORM STRENGTH: 100MG
     Route: 048

REACTIONS (4)
  - Mental disorder [Unknown]
  - Nausea [Unknown]
  - Off label use [Unknown]
  - Laboratory test abnormal [Unknown]
